FAERS Safety Report 6252999-9 (Version None)
Quarter: 2009Q2

REPORT INFORMATION
  Report Type: 
  Country: None (occurrence: None)
  Receive Date: 20090629
  Receipt Date: 20090629
  Transmission Date: 20091009
  Serious: Yes (Other)
  Sender: FDA-Public Use
  Company Number: None

PATIENT
  Age: 42 Year
  Sex: Male
  Weight: 85.2762 kg

DRUGS (2)
  1. LEXAPRO [Suspect]
  2. PROZAC [Suspect]

REACTIONS (8)
  - ABASIA [None]
  - ANXIETY [None]
  - DRY MOUTH [None]
  - HEADACHE [None]
  - HYPERHIDROSIS [None]
  - HYPERTENSION [None]
  - PALPITATIONS [None]
  - PANIC ATTACK [None]
